FAERS Safety Report 19703353 (Version 2)
Quarter: 2021Q3

REPORT INFORMATION
  Report Type: Other
  Country: DE (occurrence: DE)
  Receive Date: 20210816
  Receipt Date: 20210903
  Transmission Date: 20211014
  Serious: Yes (Life-Threatening, Other)
  Sender: FDA-Public Use
  Company Number: DE-MACLEODS PHARMA UK LTD-MAC2021032250

PATIENT

DRUGS (1)
  1. LEVOFLOXACIN 500 MG [Suspect]
     Active Substance: LEVOFLOXACIN
     Indication: CHRONIC SINUSITIS
     Dosage: 500 MILLIGRAM, BID, 1?0?1 500MG
     Route: 048
     Dates: start: 20160917, end: 20160927

REACTIONS (32)
  - Food intolerance [Unknown]
  - Urine abnormality [Not Recovered/Not Resolved]
  - Testicular pain [Not Recovered/Not Resolved]
  - Nervous system disorder [Not Recovered/Not Resolved]
  - Hormone level abnormal [Unknown]
  - Depression [Not Recovered/Not Resolved]
  - Breast disorder male [Not Recovered/Not Resolved]
  - Visual impairment [Not Recovered/Not Resolved]
  - Post viral fatigue syndrome [Not Recovered/Not Resolved]
  - Mitochondrial toxicity [Not Recovered/Not Resolved]
  - Neuropathy peripheral [Unknown]
  - Impaired work ability [Unknown]
  - Dysphagia [Not Recovered/Not Resolved]
  - Disability [Recovered/Resolved]
  - Gastrointestinal disorder [Unknown]
  - Nervous system disorder [Unknown]
  - Malnutrition [Unknown]
  - Disturbance in attention [Not Recovered/Not Resolved]
  - Oedema [Not Recovered/Not Resolved]
  - Early retirement [Unknown]
  - Mastication disorder [Not Recovered/Not Resolved]
  - Muscular weakness [Not Recovered/Not Resolved]
  - Connective tissue disorder [Not Recovered/Not Resolved]
  - Suicidal ideation [Not Recovered/Not Resolved]
  - Medication error [Unknown]
  - Impaired self-care [Unknown]
  - Myalgia [Not Recovered/Not Resolved]
  - Weight increased [Not Recovered/Not Resolved]
  - Myopathy [Not Recovered/Not Resolved]
  - Polyneuropathy [Not Recovered/Not Resolved]
  - Chronic fatigue syndrome [Not Recovered/Not Resolved]
  - Impaired gastric emptying [Unknown]

NARRATIVE: CASE EVENT DATE: 20160916
